FAERS Safety Report 9678218 (Version 1)
Quarter: 2013Q4

REPORT INFORMATION
  Report Type: Spontaneous
  Country: JP (occurrence: JP)
  Receive Date: 20131108
  Receipt Date: 20131108
  Transmission Date: 20140711
  Serious: Yes (Other)
  Sender: FDA-Public Use
  Company Number: JP-BAYER-2013-134636

PATIENT
  Age: 21 Year
  Sex: Male

DRUGS (4)
  1. PRAZIQUANTEL [Suspect]
     Indication: SCHISTOSOMIASIS
     Dosage: 40 MG/KG, BID
     Route: 048
     Dates: start: 200901, end: 200901
  2. PRAZIQUANTEL [Suspect]
     Indication: SCHISTOSOMIASIS
     Dosage: 40 MG/KG/DAY
     Route: 048
  3. PRAZIQUANTEL [Suspect]
     Indication: SCHISTOSOMIASIS
     Dosage: 40 MG/KG/DAY
     Dates: start: 200906, end: 200906
  4. PRAZIQUANTEL [Suspect]
     Indication: SCHISTOSOMIASIS
     Dosage: 60 MG/KG/DAY
     Dates: start: 200908, end: 200908

REACTIONS (3)
  - Schistosomiasis [Recovered/Resolved]
  - Pyrexia [Recovered/Resolved]
  - Eosinophilia [Recovered/Resolved]
